FAERS Safety Report 5796921-8 (Version None)
Quarter: 2008Q2

REPORT INFORMATION
  Report Type: 
  Country: None (occurrence: None)
  Receive Date: 20080618
  Receipt Date: 20070627
  Transmission Date: 20081010
  Serious: Yes (Other)
  Sender: FDA-Public Use
  Company Number: 200713026US

PATIENT
  Age: 13 Year
  Sex: Male
  Weight: 70.7 kg

DRUGS (4)
  1. LANTUS [Suspect]
     Indication: TYPE 1 DIABETES MELLITUS
     Dosage: 36 U HS SC
     Route: 058
     Dates: end: 20070401
  2. LANTUS [Suspect]
     Indication: TYPE 1 DIABETES MELLITUS
     Dosage: 38 U HS SC
     Route: 058
     Dates: start: 20070401
  3. OPTICLIK [Suspect]
     Indication: TYPE 1 DIABETES MELLITUS
  4. NOVOLOG [Concomitant]

REACTIONS (3)
  - HYPERGLYCAEMIA [None]
  - JOINT EFFUSION [None]
  - JOINT INJURY [None]
